FAERS Safety Report 4687628-9 (Version None)
Quarter: 2005Q2

REPORT INFORMATION
  Report Type: 
  Country: None (occurrence: None)
  Receive Date: 20050610
  Receipt Date: 20050608
  Transmission Date: 20051028
  Serious: Yes (Other)
  Sender: FDA-Public Use
  Company Number: PHNU2005DE02207

PATIENT
  Sex: Male

DRUGS (2)
  1. RITALIN [Suspect]
     Dosage: 10 MG, QD
     Route: 048
     Dates: start: 20000101
  2. CONCERTA [Concomitant]
     Route: 065
     Dates: start: 20041001

REACTIONS (1)
  - THROMBOCYTOPENIA [None]
